FAERS Safety Report 6175676-1 (Version None)
Quarter: 2009Q2

REPORT INFORMATION
  Report Type: 
  Country: None (occurrence: None)
  Receive Date: 20090501
  Receipt Date: 20090421
  Transmission Date: 20091009
  Serious: Yes (Other)
  Sender: FDA-Public Use
  Company Number: JP-WYE-H07122608

PATIENT
  Sex: Female

DRUGS (5)
  1. AMIODARONE HCL [Suspect]
     Indication: ARRHYTHMIA PROPHYLAXIS
     Dosage: 125 MG INITIAL RAPID INFUSION FOLLOWED BY 300 MG LOADING DOSE AND MAINTENANCE INFUSION OF 1050 MG
     Route: 042
     Dates: start: 20080616, end: 20080619
  2. HANP [Concomitant]
     Indication: CARDIAC FAILURE
     Dosage: UNKNOWN
     Route: 065
     Dates: start: 20080609, end: 20080626
  3. DOPAMINE HYDROCHLORIDE [Concomitant]
     Indication: CARDIAC FAILURE
     Dosage: UNKNOWN
     Route: 065
     Dates: start: 20080609, end: 20080626
  4. MILRILA [Concomitant]
     Indication: CARDIAC FAILURE
     Dosage: UNKNOWN
     Route: 065
     Dates: start: 20080616, end: 20080625
  5. SOL-MELCORT [Concomitant]
     Route: 042
     Dates: start: 20080618, end: 20080619

REACTIONS (1)
  - LIVER DISORDER [None]
